FAERS Safety Report 18545699 (Version 1)
Quarter: 2020Q4

REPORT INFORMATION
  Report Type: Spontaneous
  Country: US (occurrence: US)
  Receive Date: 20201125
  Receipt Date: 20201125
  Transmission Date: 20210114
  Serious: No
  Sender: FDA-Public Use
  Company Number: US-BAYER-2020-250953

PATIENT
  Age: 71 Year
  Sex: Female

DRUGS (2)
  1. MIRALAX [Suspect]
     Active Substance: POLYETHYLENE GLYCOL 3350
     Indication: IRRITABLE BOWEL SYNDROME
  2. MIRALAX [Suspect]
     Active Substance: POLYETHYLENE GLYCOL 3350
     Indication: COLITIS
     Route: 048
     Dates: start: 20200711, end: 20201117

REACTIONS (4)
  - Diarrhoea [Unknown]
  - Product use in unapproved indication [Unknown]
  - Off label use [Unknown]
  - Frequent bowel movements [None]

NARRATIVE: CASE EVENT DATE: 2020
